FAERS Safety Report 9580852 (Version 2)
Quarter: 2013Q4

REPORT INFORMATION
  Report Type: Spontaneous
  Country: GB (occurrence: GB)
  Receive Date: 20131002
  Receipt Date: 20131010
  Transmission Date: 20140711
  Serious: Yes (Other)
  Sender: FDA-Public Use
  Company Number: GB-ROCHE-1283051

PATIENT
  Sex: Female

DRUGS (3)
  1. RIBAVIRIN [Suspect]
     Indication: HEPATITIS C
     Route: 048
     Dates: start: 201301
  2. INCIVO [Suspect]
     Indication: HEPATITIS C
     Route: 048
     Dates: start: 20130118, end: 20130407
  3. PEGINTERFERON ALFA-2B [Suspect]
     Indication: HEPATITIS C
     Route: 058
     Dates: start: 201301

REACTIONS (7)
  - Rash generalised [Not Recovered/Not Resolved]
  - Rash erythematous [Not Recovered/Not Resolved]
  - Anaemia [Not Recovered/Not Resolved]
  - Skin infection [Recovering/Resolving]
  - Pain [Not Recovered/Not Resolved]
  - Skin hypertrophy [Recovering/Resolving]
  - Joint swelling [Unknown]
